FAERS Safety Report 7722724-0 (Version None)
Quarter: 2011Q3

REPORT INFORMATION
  Report Type: 
  Country: None (occurrence: None)
  Receive Date: 20110831
  Receipt Date: 20110822
  Transmission Date: 20111222
  Serious: Yes (Other)
  Sender: FDA-Public Use
  Company Number: CN-ASTRAZENECA-2011SE50076

PATIENT
  Sex: Female

DRUGS (4)
  1. BUPIVACAINE HCL [Suspect]
     Indication: ANAESTHESIA
  2. MORPHINE [Concomitant]
  3. SODIUM CHLORIDE [Concomitant]
     Route: 042
  4. MEPERIDINE HCL [Suspect]
     Indication: ANAESTHESIA
     Route: 030

REACTIONS (2)
  - DYSKINESIA [None]
  - URINARY RETENTION [None]
